FAERS Safety Report 26179748 (Version 1)
Quarter: 2025Q4

REPORT INFORMATION
  Report Type: Spontaneous
  Country: US (occurrence: US)
  Receive Date: 20251219
  Receipt Date: 20251219
  Transmission Date: 20260118
  Serious: Yes (Other)
  Sender: CHEPLAPHARM
  Company Number: US-CHEPLA-2025014237

PATIENT

DRUGS (11)
  1. OLANZAPINE [Suspect]
     Active Substance: OLANZAPINE
  2. LACTOSE [Suspect]
     Active Substance: LACTOSE
  3. CELLULOSE, MICROCRYSTALLINE [Suspect]
     Active Substance: CELLULOSE, MICROCRYSTALLINE
  4. HYDROXYPROPYL CELLULOSE [Suspect]
     Active Substance: HYDROXYPROPYL CELLULOSE
  5. CROSPOVIDONE [Suspect]
     Active Substance: CROSPOVIDONE
  6. MAGNESIUM STEARATE [Suspect]
     Active Substance: MAGNESIUM STEARATE
  7. BEESWAX [Suspect]
     Active Substance: YELLOW WAX
  8. HYPROMELLOSES [Suspect]
     Active Substance: HYPROMELLOSES
  9. POLYETHYLENE GLYCOL [Suspect]
     Active Substance: POLYETHYLENE GLYCOL
  10. TITANIUM DIOXIDE [Suspect]
     Active Substance: TITANIUM DIOXIDE
  11. FERRIC OXIDE RED [Suspect]
     Active Substance: FERRIC OXIDE RED

REACTIONS (6)
  - Type 2 diabetes mellitus [Unknown]
  - Osteomyelitis [Unknown]
  - Emotional distress [Unknown]
  - Socioeconomic precarity [Unknown]
  - Impaired quality of life [Unknown]
  - Pain [Unknown]
